FAERS Safety Report 17084297 (Version 1)
Quarter: 2019Q4

REPORT INFORMATION
  Report Type: Spontaneous
  Country: DE (occurrence: DE)
  Receive Date: 20191127
  Receipt Date: 20191127
  Transmission Date: 20200122
  Serious: Yes (Hospitalization)
  Sender: FDA-Public Use
  Company Number: DE-ELI_LILLY_AND_COMPANY-DE201911007742

PATIENT
  Age: 12 Year
  Sex: Female
  Weight: 44 kg

DRUGS (4)
  1. HUMALOG [Suspect]
     Active Substance: INSULIN LISPRO
     Dosage: 17.9 INTERNATIONAL UNIT, DAILY
     Route: 058
  2. HUMALOG [Suspect]
     Active Substance: INSULIN LISPRO
     Indication: TYPE 1 DIABETES MELLITUS
     Dosage: 15.4 INTERNATIONAL UNIT, DAILY
     Route: 058
  3. HUMALOG [Suspect]
     Active Substance: INSULIN LISPRO
     Dosage: 15.8 INTERNATIONAL UNIT, DAILY
     Route: 058
  4. IBUFLAM [IBUPROFEN] [Concomitant]
     Active Substance: IBUPROFEN
     Indication: HEADACHE
     Dosage: 400 MG, UNKNOWN
     Route: 048
     Dates: start: 20190527, end: 20190529

REACTIONS (5)
  - Diabetic metabolic decompensation [Unknown]
  - Hyponatraemia [Unknown]
  - Treatment noncompliance [Unknown]
  - Product administration error [Unknown]
  - Intentional removal of drug delivery system by patient [Unknown]

NARRATIVE: CASE EVENT DATE: 20190529
